FAERS Safety Report 19413572 (Version 1)
Quarter: 2021Q2

REPORT INFORMATION
  Report Type: Spontaneous
  Country: DE (occurrence: DE)
  Receive Date: 20210614
  Receipt Date: 20210614
  Transmission Date: 20210717
  Serious: Yes (Death, Other)
  Sender: FDA-Public Use
  Company Number: DE-ELI_LILLY_AND_COMPANY-DE202003004395

PATIENT
  Age: 65 Year

DRUGS (6)
  1. PEMBROLIZUMAB. [Suspect]
     Active Substance: PEMBROLIZUMAB
     Indication: LUNG NEOPLASM MALIGNANT
     Dosage: 1ST LINE
     Route: 065
  2. NINTEDANIB [Suspect]
     Active Substance: NINTEDANIB
     Indication: LUNG NEOPLASM MALIGNANT
     Dosage: UNK UNK, UNKNOWN
     Route: 065
     Dates: start: 20190925, end: 20191106
  3. NINTEDANIB [Suspect]
     Active Substance: NINTEDANIB
     Dosage: MAINTAINENCE THERAPY
     Route: 065
  4. PEMETREXED. [Suspect]
     Active Substance: PEMETREXED
     Indication: LUNG NEOPLASM MALIGNANT
     Dosage: UNK UNK, CYCLICAL
     Route: 065
     Dates: end: 20191106
  5. CISPLATIN. [Suspect]
     Active Substance: CISPLATIN
     Indication: LUNG NEOPLASM MALIGNANT
     Dosage: UNK UNK, CYCLICAL
     Route: 065
     Dates: end: 20191106
  6. DOCETAXEL. [Suspect]
     Active Substance: DOCETAXEL
     Indication: LUNG NEOPLASM MALIGNANT
     Dosage: 3 CYCLES
     Route: 065
     Dates: start: 20190925, end: 20191106

REACTIONS (2)
  - Malignant neoplasm progression [Unknown]
  - Death [Fatal]

NARRATIVE: CASE EVENT DATE: 20200131
